FAERS Safety Report 23541668 (Version 1)
Quarter: 2024Q1

REPORT INFORMATION
  Report Type: Spontaneous
  Country: US (occurrence: US)
  Receive Date: 20240219
  Receipt Date: 20240219
  Transmission Date: 20240410
  Serious: No
  Sender: FDA-Public Use
  Company Number: US-Axellia-004707

PATIENT
  Sex: Female

DRUGS (1)
  1. VANCOMYCIN [Suspect]
     Active Substance: VANCOMYCIN
     Indication: Clostridium difficile infection
     Dosage: STRENGTH: 125 MG, 1 CAPSULE 4 TIMES DAILY
     Dates: start: 20230412, end: 20230423

REACTIONS (3)
  - Rash [Unknown]
  - Rhinalgia [Unknown]
  - Oral herpes [Unknown]
